FAERS Safety Report 25063816 (Version 1)
Quarter: 2025Q1

REPORT INFORMATION
  Report Type: Spontaneous
  Country: US (occurrence: None)
  Receive Date: 20250311
  Receipt Date: 20250311
  Transmission Date: 20250409
  Serious: Yes (Hospitalization)
  Sender: FDA-CTU
  Company Number: None

PATIENT
  Age: 45 Year
  Sex: Male
  Weight: 81 kg

DRUGS (3)
  1. PRIFTIN [Suspect]
     Active Substance: RIFAPENTINE
     Indication: Tuberculosis
  2. ISONIAZID [Suspect]
     Active Substance: ISONIAZID
  3. VITAMIN B6 [Suspect]
     Active Substance: PYRIDOXINE HYDROCHLORIDE

REACTIONS (3)
  - Pyrexia [None]
  - Alanine aminotransferase increased [None]
  - Aspartate aminotransferase increased [None]

NARRATIVE: CASE EVENT DATE: 20250227
